FAERS Safety Report 8388771-3 (Version None)
Quarter: 2012Q2

REPORT INFORMATION
  Report Type: 
  Country: None (occurrence: None)
  Receive Date: 20120528
  Receipt Date: 20120515
  Transmission Date: 20120825
  Serious: Yes (Other)
  Sender: FDA-Public Use
  Company Number: FR-BRISTOL-MYERS SQUIBB COMPANY-16629131

PATIENT
  Age: 1 Day
  Sex: Male
  Weight: 2 kg

DRUGS (3)
  1. CISPLATIN [Suspect]
     Route: 064
  2. ETOPOSIDE [Suspect]
     Dosage: 1DF= 5G/M3
     Route: 064
  3. BLEOMYCIN SULFATE [Suspect]
     Dosage: 5 DAYS
     Route: 064

REACTIONS (1)
  - LOW BIRTH WEIGHT BABY [None]
